FAERS Safety Report 21088327 (Version 1)
Quarter: 2022Q3

REPORT INFORMATION
  Report Type: Spontaneous
  Country: US (occurrence: None)
  Receive Date: 20220715
  Receipt Date: 20220715
  Transmission Date: 20221026
  Serious: Yes (Hospitalization)
  Sender: FDA-Public Use
  Company Number: None

PATIENT
  Age: 73 Year
  Sex: Female
  Weight: 55.8 kg

DRUGS (2)
  1. CARBOPLATIN [Suspect]
     Active Substance: CARBOPLATIN
  2. TAXOL [Suspect]
     Active Substance: PACLITAXEL
     Dates: end: 20220628

REACTIONS (8)
  - Pain [None]
  - Dysphagia [None]
  - Feeding disorder [None]
  - Nausea [None]
  - Vomiting [None]
  - Abdominal pain [None]
  - Oesophagitis [None]
  - Drug intolerance [None]

NARRATIVE: CASE EVENT DATE: 20220705
